FAERS Safety Report 4900261-6 (Version None)
Quarter: 2006Q1

REPORT INFORMATION
  Report Type: 
  Country: None (occurrence: None)
  Receive Date: 20060203
  Receipt Date: 20060124
  Transmission Date: 20060701
  Serious: Yes (Hospitalization)
  Sender: FDA-Public Use
  Company Number: US-ROCHE-433609

PATIENT
  Age: 52 Year
  Sex: Male

DRUGS (2)
  1. PEGASYS [Suspect]
     Dosage: ROUTE: INJ
     Route: 050
     Dates: start: 20051205, end: 20051212
  2. COPEGUS [Suspect]
     Route: 048
     Dates: start: 20051205, end: 20051215

REACTIONS (3)
  - ALANINE AMINOTRANSFERASE INCREASED [None]
  - BLOOD BILIRUBIN INCREASED [None]
  - DIABETIC KETOACIDOSIS [None]
